FAERS Safety Report 8072954-6 (Version None)
Quarter: 2012Q1

REPORT INFORMATION
  Report Type: 
  Country: None (occurrence: None)
  Receive Date: 20120126
  Receipt Date: 20120117
  Transmission Date: 20120608
  Serious: Yes (Other)
  Sender: FDA-Public Use
  Company Number: TW-ASTRAZENECA-2012SE03385

PATIENT
  Age: 56 Year
  Sex: Female

DRUGS (3)
  1. ESTAZOLAM [Concomitant]
     Dosage: 2 MG DAILY
  2. VALPROIC ACID [Interacting]
     Indication: BIPOLAR DISORDER
  3. QUETIAPINE [Suspect]
     Indication: BIPOLAR DISORDER
     Route: 048

REACTIONS (4)
  - NEUTROPENIA [None]
  - DRUG INTERACTION [None]
  - UPPER RESPIRATORY TRACT INFECTION [None]
  - THROMBOCYTOPENIA [None]
